FAERS Safety Report 23667641 (Version 1)
Quarter: 2024Q1

REPORT INFORMATION
  Report Type: Spontaneous
  Country: US (occurrence: US)
  Receive Date: 20240325
  Receipt Date: 20240325
  Transmission Date: 20240409
  Serious: Yes (Life-Threatening, Hospitalization)
  Sender: FDA-Public Use
  Company Number: US-TEVA-VS-3173497

PATIENT
  Age: 67 Year
  Sex: Female

DRUGS (6)
  1. PROPOFOL [Suspect]
     Active Substance: PROPOFOL
     Indication: Anaesthesia
     Route: 065
  2. LABETALOL [Suspect]
     Active Substance: LABETALOL\LABETALOL HYDROCHLORIDE
     Indication: Hypertension
     Dosage: TWO DOSES
     Route: 042
  3. FENTANYL [Suspect]
     Active Substance: FENTANYL\FENTANYL CITRATE
     Indication: Anaesthesia
     Route: 065
  4. SUCCINYLCHOLINE [Suspect]
     Active Substance: SUCCINYLCHOLINE
     Indication: Anaesthesia
     Route: 065
  5. ETOMIDATE [Suspect]
     Active Substance: ETOMIDATE
     Indication: Anaesthesia
     Route: 065
  6. DEXMEDETOMIDINE [Suspect]
     Active Substance: DEXMEDETOMIDINE
     Indication: Anaesthesia
     Route: 065

REACTIONS (2)
  - Phaeochromocytoma crisis [Recovering/Resolving]
  - Therapy non-responder [Unknown]
